FAERS Safety Report 23738004 (Version 1)
Quarter: 2024Q2

REPORT INFORMATION
  Report Type: Spontaneous
  Country: US (occurrence: None)
  Receive Date: 20240412
  Receipt Date: 20240412
  Transmission Date: 20240715
  Serious: Yes (Hospitalization)
  Sender: FDA-Public Use
  Company Number: None

PATIENT
  Sex: Female

DRUGS (1)
  1. RETACRIT [Suspect]
     Active Substance: EPOETIN ALFA-EPBX
     Indication: Iron deficiency anaemia
     Dosage: 30,000 UNITS EVERY 14 DAYS SUBCUTANEOUS
     Route: 058
     Dates: start: 202403

REACTIONS (2)
  - Tension [None]
  - Diabetes mellitus [None]
